FAERS Safety Report 18899347 (Version 1)
Quarter: 2021Q1

REPORT INFORMATION
  Report Type: Report from Study
  Country: US (occurrence: US)
  Receive Date: 20210216
  Receipt Date: 20210216
  Transmission Date: 20210420
  Serious: Yes (Other)
  Sender: FDA-Public Use
  Company Number: US-JAZZ-2021-US-002291

PATIENT
  Sex: Male

DRUGS (3)
  1. XYREM [Suspect]
     Active Substance: SODIUM OXYBATE
     Indication: NARCOLEPSY
     Dosage: 3 GRAM, BID
     Route: 048
     Dates: start: 201208, end: 201210
  2. XYREM [Suspect]
     Active Substance: SODIUM OXYBATE
     Indication: CATAPLEXY
     Dosage: DOSE ADJUSTMENTS
     Route: 048
     Dates: start: 201210, end: 201505
  3. XYREM [Suspect]
     Active Substance: SODIUM OXYBATE
     Dosage: 4.5 GRAM, BID
     Route: 048
     Dates: start: 201505, end: 202101

REACTIONS (11)
  - Impaired gastric emptying [Unknown]
  - Pituitary tumour benign [Unknown]
  - Back pain [Unknown]
  - Ankle fracture [Unknown]
  - Erectile dysfunction [Unknown]
  - Blood cholesterol increased [Unknown]
  - Renal disorder [Unknown]
  - Chemotherapy [Unknown]
  - Fall [Recovered/Resolved]
  - Cardiac disorder [Unknown]
  - Pneumocystis jirovecii pneumonia [Unknown]
